FAERS Safety Report 25814137 (Version 5)
Quarter: 2025Q4

REPORT INFORMATION
  Report Type: Report from Study
  Country: US (occurrence: US)
  Receive Date: 20250917
  Receipt Date: 20251124
  Transmission Date: 20260118
  Serious: Yes (Other)
  Sender: MALLINCKRODT
  Company Number: US-MALLINCKRODT-MNK202505357

PATIENT
  Age: 75 Year
  Sex: Female

DRUGS (2)
  1. CORTICOTROPIN [Suspect]
     Active Substance: CORTICOTROPIN
     Indication: Rheumatoid arthritis
     Dosage: 80 UNITS
     Route: 058
     Dates: start: 20250802
  2. PREDNISONE [Suspect]
     Active Substance: PREDNISONE
     Indication: Product used for unknown indication
     Dosage: UNKNOWN

REACTIONS (10)
  - Rheumatoid arthritis [Unknown]
  - Dyspnoea [Unknown]
  - Pain in extremity [Unknown]
  - Fall [Unknown]
  - Gait disturbance [Unknown]
  - Frustration tolerance decreased [Unknown]
  - Injection site erythema [Recovered/Resolved]
  - Fatigue [Unknown]
  - Absence of immediate treatment response [Unknown]
  - Drug ineffective [Unknown]

NARRATIVE: CASE EVENT DATE: 20250101
